FAERS Safety Report 9369275 (Version 1)
Quarter: 2013Q2

REPORT INFORMATION
  Report Type: Spontaneous
  Country: AU (occurrence: None)
  Receive Date: 20130621
  Receipt Date: 20130621
  Transmission Date: 20140414
  Serious: Yes (Hospitalization)
  Sender: FDA-Public Use
  Company Number: 2013AP006047

PATIENT
  Age: 18 Month
  Sex: Female

DRUGS (1)
  1. LAMOTRIGINE [Suspect]

REACTIONS (9)
  - Accidental exposure to product by child [None]
  - Agitation [None]
  - Depressed level of consciousness [None]
  - Choreoathetosis [None]
  - Abnormal behaviour [None]
  - Hypertonia [None]
  - Dyskinesia [None]
  - Dyskinesia [None]
  - Drug level increased [None]
